FAERS Safety Report 11869752 (Version 1)
Quarter: 2015Q4

REPORT INFORMATION
  Report Type: Spontaneous
  Country: AT (occurrence: AT)
  Receive Date: 20151228
  Receipt Date: 20151228
  Transmission Date: 20160305
  Serious: Yes (Disabling)
  Sender: FDA-Public Use
  Company Number: AT-AMGEN-AUTSP2015137368

PATIENT
  Age: 63 Year
  Sex: Female
  Weight: 47 kg

DRUGS (1)
  1. PROLIA [Suspect]
     Active Substance: DENOSUMAB
     Indication: OSTEOPOROSIS
     Dosage: 1 DF, Q6MO
     Route: 065
     Dates: start: 201409

REACTIONS (2)
  - Implant site reaction [Recovered/Resolved with Sequelae]
  - Swelling [Recovered/Resolved with Sequelae]

NARRATIVE: CASE EVENT DATE: 201411
